FAERS Safety Report 4417059-8 (Version None)
Quarter: 2004Q2

REPORT INFORMATION
  Report Type: 
  Country: None (occurrence: None)
  Receive Date: 20040629
  Receipt Date: 20031110
  Transmission Date: 20050107
  Serious: No
  Sender: FDA-Public Use
  Company Number: US054597

PATIENT
  Sex: Male

DRUGS (1)
  1. ARANESP [Suspect]
     Indication: RENAL FAILURE CHRONIC
     Dosage: 200 MCG
     Dates: start: 20031027

REACTIONS (2)
  - GOUT [None]
  - PAIN IN EXTREMITY [None]
